FAERS Safety Report 8277133-5 (Version None)
Quarter: 2012Q2

REPORT INFORMATION
  Report Type: 
  Country: None (occurrence: None)
  Receive Date: 20120412
  Receipt Date: 20120406
  Transmission Date: 20120825
  Serious: Yes (Other)
  Sender: FDA-Public Use
  Company Number: FR-PFIZER INC-2012086901

PATIENT
  Age: 87 Year
  Sex: Female

DRUGS (11)
  1. IRBESARTAN [Concomitant]
     Dosage: 300 MG, 1X/DAY
     Route: 048
  2. LOVENOX [Concomitant]
     Dosage: 4000 IU, 1X/DAY
     Route: 058
     Dates: start: 20120101
  3. TRIMEBUTINE MALEATE [Concomitant]
     Dosage: 100 MG
     Route: 048
     Dates: start: 20120101
  4. PANTOPRAZOLE SODIUM [Concomitant]
     Dosage: 40 MG, 1X/DAY
     Route: 048
  5. ATARAX [Concomitant]
     Dosage: 25 MG, 1X/DAY
     Route: 048
     Dates: start: 20120101
  6. LYRICA [Suspect]
     Dosage: 75 MG, 2X/DAY
     Route: 048
     Dates: start: 20120209, end: 20120213
  7. ACETAMINOPHEN [Concomitant]
     Dosage: 1 G, 3X/DAY
     Route: 048
     Dates: start: 20120101
  8. AMLODIPINE BESYLATE [Concomitant]
     Dosage: 10 MG, 1X/DAY
  9. LANSOYL [Concomitant]
     Dosage: UNK
     Route: 048
     Dates: start: 20120101
  10. FLUTICASONE PROPIONATE/SALMETEROL [Concomitant]
     Dosage: 1 DF, 2X/DAY
     Route: 055
  11. TRAMADOL HCL [Suspect]
     Dosage: 50 MG, 2X/DAY
     Route: 048
     Dates: start: 20120101, end: 20120214

REACTIONS (3)
  - CONFUSIONAL STATE [None]
  - LOGORRHOEA [None]
  - HALLUCINATION, VISUAL [None]
